FAERS Safety Report 6415052-7 (Version None)
Quarter: 2009Q4

REPORT INFORMATION
  Report Type: 
  Country: None (occurrence: None)
  Receive Date: 20091021
  Receipt Date: 20091007
  Transmission Date: 20100525
  Serious: Yes (Other)
  Sender: FDA-Public Use
  Company Number: 8037896

PATIENT
  Sex: Female

DRUGS (3)
  1. KEPPRA [Suspect]
     Indication: EPILEPSY
     Dosage: 250 MG/D
     Dates: start: 20080923, end: 20081009
  2. KEPPRA [Suspect]
     Indication: EPILEPSY
     Dosage: 750 MG /D
     Dates: start: 20081010
  3. KEPPRA [Suspect]
     Indication: EPILEPSY
     Dosage: 3000 MG /D  PO
     Route: 048
     Dates: start: 20090201

REACTIONS (4)
  - BACK PAIN [None]
  - COMPLICATION OF PREGNANCY [None]
  - DRUG EXPOSURE DURING PREGNANCY [None]
  - ROAD TRAFFIC ACCIDENT [None]
